FAERS Safety Report 4498283-5 (Version None)
Quarter: 2004Q3

REPORT INFORMATION
  Report Type: 
  Country: None (occurrence: None)
  Receive Date: 20040927
  Receipt Date: 20040611
  Transmission Date: 20050211
  Serious: No
  Sender: FDA-Public Use
  Company Number: USA040669978

PATIENT
  Age: 27 Year
  Sex: Male
  Weight: 102 kg

DRUGS (1)
  1. STRATTERA [Suspect]
     Indication: DISTURBANCE IN ATTENTION
     Dosage: 80 MG DAY
     Dates: start: 20040521

REACTIONS (2)
  - AGITATION [None]
  - HEADACHE [None]
